FAERS Safety Report 10081663 (Version 2)
Quarter: 2014Q2

REPORT INFORMATION
  Report Type: Spontaneous
  Country: GB (occurrence: None)
  Receive Date: 20140414
  Receipt Date: 20140508
  Transmission Date: 20141212
  Serious: Yes (Other)
  Sender: FDA-Public Use
  Company Number: AUR-APL-2014-04252

PATIENT
  Age: 83 Year
  Sex: Female

DRUGS (17)
  1. CLOPIDOGREL [Suspect]
     Indication: MYOCARDIAL INFARCTION
     Route: 048
     Dates: start: 201308
  2. XARELTO(RIVAROXABAN) [Suspect]
     Indication: ATRIAL FIBRILLATION
     Dates: start: 201308, end: 20140315
  3. ATORVASTATIN(ATORVASTATIN) [Concomitant]
  4. BISOPROLOL(BISOPROLOL) [Concomitant]
  5. CO-TRIMOXAZOLE(CO-TRIMOXAZOLE) [Concomitant]
  6. DICLOFENAC(DICLOFENAC) [Concomitant]
  7. EUMOVATE(CLOBETASONE BUTYRATE) [Concomitant]
  8. FERROUS FUMARATE(FERROUS FUMARATE) [Concomitant]
  9. FOLIC ACID(FOLIC ACID) [Concomitant]
  10. GTN(GLYCERYL TRINTRATE) [Concomitant]
  11. ISOSRBIDE(ISOSORBIDE) [Concomitant]
  12. LANSOPRAZOLE(LANSOPRAZOLE) [Concomitant]
  13. LEVOTHYROXINE(LEVOTHYROXINE) [Concomitant]
  14. NICORANDIL(NICORANDIL) [Concomitant]
  15. PARACETMOL(PARACETAMOL) [Concomitant]
  16. SALAZOPYRIN(SULFASALAZINE) [Concomitant]
  17. TRAMADOL(TRAMADOL) [Concomitant]

REACTIONS (3)
  - Hepatic function abnormal [None]
  - Hepatic function abnormal [None]
  - Anaemia [None]
